FAERS Safety Report 10676034 (Version 3)
Quarter: 2015Q4

REPORT INFORMATION
  Report Type: Report from Study
  Country: JP (occurrence: JP)
  Receive Date: 20141225
  Receipt Date: 20151030
  Transmission Date: 20160304
  Serious: Yes (Hospitalization, Other)
  Sender: FDA-Public Use
  Company Number: PHHY2013JP092311

PATIENT
  Age: 32 Year
  Sex: Male
  Weight: 47 kg

DRUGS (24)
  1. BAKTAR [Concomitant]
     Active Substance: SULFAMETHOXAZOLE\TRIMETHOPRIM
     Indication: ANTIFUNGAL PROPHYLAXIS
     Dosage: 1 DF, QW
     Route: 048
     Dates: start: 20021103
  2. BEPRICOR [Concomitant]
     Active Substance: BEPRIDIL
     Dosage: 100 MG, UNK
     Route: 048
     Dates: start: 20081213
  3. NEORAL [Concomitant]
     Active Substance: CYCLOSPORINE
     Indication: HEART TRANSPLANT
     Dosage: 225 MG, UNK
     Route: 048
     Dates: start: 19971028, end: 20070712
  4. NEORAL [Concomitant]
     Active Substance: CYCLOSPORINE
     Dosage: 200 MG, UNK
     Route: 048
     Dates: start: 20070713, end: 20071007
  5. PREDONINE [Concomitant]
     Active Substance: PREDNISOLONE\PREDNISOLONE ACETATE\PREDNISOLONE SODIUM SUCCINATE
     Indication: HEART TRANSPLANT
     Dosage: 5 MG, UNK
     Route: 065
     Dates: start: 20021023
  6. CERTICAN [Suspect]
     Active Substance: EVEROLIMUS
     Indication: HEART TRANSPLANT
     Dosage: 1.5 MG, QD
     Route: 048
     Dates: start: 20061129
  7. BEPRICOR [Concomitant]
     Active Substance: BEPRIDIL
     Indication: ARRHYTHMIA
     Dosage: 100 MG, UNK
     Route: 048
     Dates: start: 20070402
  8. NEORAL [Concomitant]
     Active Substance: CYCLOSPORINE
     Dosage: 225 MG, UNK
     Route: 048
     Dates: start: 20071008
  9. CERTICAN [Suspect]
     Active Substance: EVEROLIMUS
     Dosage: 1.5 MG, QD
     Route: 048
     Dates: start: 20091213, end: 20101129
  10. CERTICAN [Suspect]
     Active Substance: EVEROLIMUS
     Dosage: 0.75 MG, UNK
     Route: 048
     Dates: start: 201411
  11. EPADEL-S [Concomitant]
     Active Substance: ICOSAPENT ETHYL
     Dosage: 600 MG, UNK
     Route: 048
     Dates: start: 20081213
  12. CELLCEPT [Concomitant]
     Active Substance: MYCOPHENOLATE MOFETIL\MYCOPHENOLATE MOFETIL HYDROCHLORIDE
     Dosage: 2000 MG, UNK
     Route: 065
     Dates: start: 20070828, end: 20081025
  13. CERTICAN [Suspect]
     Active Substance: EVEROLIMUS
     Indication: PROPHYLAXIS AGAINST TRANSPLANT REJECTION
     Dosage: 1.5 MG, QD
     Route: 048
     Dates: start: 20081213
  14. BAKTAR [Concomitant]
     Active Substance: SULFAMETHOXAZOLE\TRIMETHOPRIM
     Dosage: 4 DF, QW
     Route: 048
     Dates: start: 20081213
  15. CELLCEPT [Concomitant]
     Active Substance: MYCOPHENOLATE MOFETIL\MYCOPHENOLATE MOFETIL HYDROCHLORIDE
     Dosage: 2500 MG, UNK
     Route: 065
     Dates: start: 20081026
  16. TACROLIMUS. [Concomitant]
     Active Substance: TACROLIMUS
     Indication: PRODUCT USED FOR UNKNOWN INDICATION
     Dosage: UNK
     Route: 065
  17. EPADEL-S [Concomitant]
     Active Substance: ICOSAPENT ETHYL
     Indication: HYPERLIPIDAEMIA
     Dosage: 1200 MG, UNK
     Route: 048
     Dates: start: 20051205
  18. PREDONINE [Concomitant]
     Active Substance: PREDNISOLONE\PREDNISOLONE ACETATE\PREDNISOLONE SODIUM SUCCINATE
     Dosage: 100 MG, UNK
     Route: 065
     Dates: start: 20080922, end: 20080924
  19. PREDONINE [Concomitant]
     Active Substance: PREDNISOLONE\PREDNISOLONE ACETATE\PREDNISOLONE SODIUM SUCCINATE
     Dosage: 5 MG, UNK
     Route: 065
     Dates: start: 20081213
  20. CELLCEPT [Concomitant]
     Active Substance: MYCOPHENOLATE MOFETIL\MYCOPHENOLATE MOFETIL HYDROCHLORIDE
     Indication: HEART TRANSPLANT
     Dosage: 2500 MG, UNK
     Route: 065
     Dates: start: 20001113, end: 20070827
  21. CELLCEPT [Concomitant]
     Active Substance: MYCOPHENOLATE MOFETIL\MYCOPHENOLATE MOFETIL HYDROCHLORIDE
     Dosage: UNK MG, UNK
     Route: 065
  22. BAKTAR [Concomitant]
     Active Substance: SULFAMETHOXAZOLE\TRIMETHOPRIM
     Dosage: 1 DF, QW
     Route: 048
     Dates: start: 20091213
  23. NEORAL [Concomitant]
     Active Substance: CYCLOSPORINE
     Dosage: 200 MG, UNK
     Route: 048
     Dates: start: 20081213
  24. CELLCEPT [Concomitant]
     Active Substance: MYCOPHENOLATE MOFETIL\MYCOPHENOLATE MOFETIL HYDROCHLORIDE
     Dosage: 3000 MG, UNK
     Route: 065
     Dates: start: 20081213, end: 20091128

REACTIONS (10)
  - Cardiac failure [Not Recovered/Not Resolved]
  - Pleural effusion [Not Recovered/Not Resolved]
  - Haemoglobin decreased [Unknown]
  - Blood cholesterol increased [Not Recovered/Not Resolved]
  - Gout [Recovering/Resolving]
  - Dyspnoea [Unknown]
  - Chest discomfort [Recovered/Resolved]
  - Chylothorax [Recovering/Resolving]
  - Oedema peripheral [Not Recovered/Not Resolved]
  - Heart transplant rejection [Recovered/Resolved]

NARRATIVE: CASE EVENT DATE: 20070702
